FAERS Safety Report 24356818 (Version 1)
Quarter: 2024Q3

REPORT INFORMATION
  Report Type: Other
  Country: CN (occurrence: CN)
  Receive Date: 20240924
  Receipt Date: 20240924
  Transmission Date: 20241016
  Serious: Yes (Other)
  Sender: B BRAUN
  Company Number: CN-B.Braun Medical Inc.-2161944

PATIENT
  Age: 69 Year
  Sex: Male

DRUGS (8)
  1. LIDOCAINE HYDROCHLORIDE [Suspect]
     Active Substance: LIDOCAINE HYDROCHLORIDE
     Indication: General anaesthesia
  2. LIDOCAINE HYDROCHLORIDE [Suspect]
     Active Substance: LIDOCAINE HYDROCHLORIDE
     Indication: Oesophageal carcinoma
  3. CISATRACURIUM [Concomitant]
     Active Substance: CISATRACURIUM
  4. ATROPINE [Concomitant]
     Active Substance: ATROPINE
  5. EPHEDRINE [Concomitant]
     Active Substance: EPHEDRINE
  6. SEVOFLURANE [Concomitant]
     Active Substance: SEVOFLURANE
  7. PROPOFOL [Concomitant]
     Active Substance: PROPOFOL
  8. SUFENTANIL [Concomitant]
     Active Substance: SUFENTANIL

REACTIONS (3)
  - Toxicity to various agents [Recovering/Resolving]
  - Off label use [Recovering/Resolving]
  - Delirium [Recovering/Resolving]
